FAERS Safety Report 8167771-2 (Version None)
Quarter: 2012Q1

REPORT INFORMATION
  Report Type: 
  Country: None (occurrence: None)
  Receive Date: 20120227
  Receipt Date: 20120217
  Transmission Date: 20120608
  Serious: No
  Sender: FDA-Public Use
  Company Number: US-BAYER-2012-016325

PATIENT
  Age: 55 Year
  Sex: Female
  Weight: 113.38 kg

DRUGS (6)
  1. ULTRAVIST 150 [Suspect]
     Indication: FLANK PAIN
  2. WELLBUTRIN [Concomitant]
  3. ULTRAVIST 150 [Suspect]
     Indication: COMPUTERISED TOMOGRAM ABDOMEN
     Dosage: 120 ML, ONCE
     Route: 042
     Dates: start: 20120217, end: 20120217
  4. BENICAR [Concomitant]
  5. ULTRAVIST 150 [Suspect]
     Indication: COMPUTERISED TOMOGRAM
  6. BARIUM [Concomitant]
     Route: 048

REACTIONS (4)
  - URTICARIA [None]
  - PRURITUS [None]
  - FEELING HOT [None]
  - EYE SWELLING [None]
